FAERS Safety Report 8791155 (Version 2)
Quarter: 2012Q4

REPORT INFORMATION
  Report Type: Spontaneous
  Country: ES (occurrence: None)
  Receive Date: 20120912
  Receipt Date: 20120918
  Transmission Date: 20130627
  Serious: Yes (Other)
  Sender: FDA-Public Use
  Company Number: AUR-APL-2012-03913

PATIENT
  Age: 54 Year
  Sex: Male

DRUGS (4)
  1. METFORMIN (METFORMIN) [Suspect]
     Indication: DRUG USE FOR UNKNOWN INDICATION
     Dosage: 1700 mg (850 mg,2 in 1 D),Unknown
  2. LANTUS [Concomitant]
  3. VALSARTAN (VALSARTAN) [Concomitant]
  4. AMLODIPINE (AMLODIPINE) [Concomitant]

REACTIONS (13)
  - Diarrhoea [None]
  - Vomiting [None]
  - Blindness transient [None]
  - Hypoglycaemia [None]
  - Metabolic acidosis [None]
  - Renal failure acute [None]
  - Kussmaul respiration [None]
  - Mucosal dryness [None]
  - Dry skin [None]
  - Blood pressure decreased [None]
  - Confusional state [None]
  - Diabetic retinopathy [None]
  - Vitreous haemorrhage [None]
